FAERS Safety Report 9288527 (Version 1)
Quarter: 2013Q2

REPORT INFORMATION
  Report Type: Spontaneous
  Country: US (occurrence: US)
  Receive Date: 20130514
  Receipt Date: 20130514
  Transmission Date: 20140414
  Serious: No
  Sender: FDA-Public Use
  Company Number: US-OPTIMER PHARMACEUTICALS, INC.-20110040

PATIENT
  Sex: 0

DRUGS (12)
  1. DIFICID [Suspect]
     Indication: CLOSTRIDIUM DIFFICILE COLITIS
     Dosage: 200 MG, BID
     Route: 048
     Dates: start: 20110923, end: 20111002
  2. VANCOMYCIN [Suspect]
     Indication: CLOSTRIDIUM DIFFICILE COLITIS
     Dosage: UNK
     Dates: start: 201109
  3. VANCOMYCIN [Suspect]
     Dosage: 250 MG, QID
     Route: 048
     Dates: start: 201110
  4. LACTINEX [Concomitant]
  5. NORVASC [Concomitant]
  6. BONIVA [Concomitant]
  7. ARICEPT [Concomitant]
  8. NEURONTIN [Concomitant]
  9. VITAMIN B12 [Concomitant]
  10. OCUVITE [Concomitant]
  11. SEROQUEL [Concomitant]
  12. ZOLOFT [Concomitant]

REACTIONS (6)
  - Clostridium difficile colitis [Not Recovered/Not Resolved]
  - Disease recurrence [Not Recovered/Not Resolved]
  - Asthenia [Not Recovered/Not Resolved]
  - Pyrexia [Recovered/Resolved]
  - Mucous stools [Not Recovered/Not Resolved]
  - Diarrhoea [Not Recovered/Not Resolved]
